FAERS Safety Report 6020277-9 (Version None)
Quarter: 2008Q4

REPORT INFORMATION
  Report Type: 
  Country: None (occurrence: None)
  Receive Date: 20081226
  Receipt Date: 20081222
  Transmission Date: 20090506
  Serious: Yes (Life-Threatening, Hospitalization, Other)
  Sender: FDA-Public Use
  Company Number: PHHY2008JP29280

PATIENT
  Age: 38 Year
  Sex: Male
  Weight: 105 kg

DRUGS (5)
  1. RITALIN [Suspect]
     Indication: DEPRESSION
     Dosage: 70 MG
     Route: 048
  2. TECIPUL [Suspect]
     Indication: DEPRESSION
     Dosage: 3 MG
     Route: 048
  3. TRICYCLIC ANTIDEPRESSANTS [Concomitant]
  4. BENZODIAZEPINES [Concomitant]
  5. SENIRAN [Concomitant]
     Indication: DEPRESSION
     Dosage: 15 MG
     Route: 048

REACTIONS (15)
  - ANXIETY [None]
  - AUTONOMIC NEUROPATHY [None]
  - BLOOD BILIRUBIN INCREASED [None]
  - BLOOD LACTATE DEHYDROGENASE INCREASED [None]
  - BLOOD UREA DECREASED [None]
  - CARDIAC FAILURE ACUTE [None]
  - DILATATION VENTRICULAR [None]
  - DYSPNOEA [None]
  - GAMMA-GLUTAMYLTRANSFERASE INCREASED [None]
  - HYPOKINESIA [None]
  - MALAISE [None]
  - PALPITATIONS [None]
  - PROTEIN URINE PRESENT [None]
  - PULMONARY CONGESTION [None]
  - SCINTIGRAPHY [None]
